FAERS Safety Report 26129335 (Version 1)
Quarter: 2025Q4

REPORT INFORMATION
  Report Type: Spontaneous
  Country: IN (occurrence: IN)
  Receive Date: 20251208
  Receipt Date: 20251208
  Transmission Date: 20260118
  Serious: Yes (Other)
  Sender: ROCHE
  Company Number: IN-ROCHE-10000452271

PATIENT
  Sex: Male

DRUGS (9)
  1. MABTHERA [Suspect]
     Active Substance: RITUXIMAB
     Indication: B-cell lymphoma stage IV
     Dosage: CHEMOTHERAPY (R-CHOP) REGIMEN 4 NOS. CYCLES,?POLA-R-GEMOX REGIMEN 05 CYCLES
     Route: 065
  2. MABTHERA [Suspect]
     Active Substance: RITUXIMAB
     Indication: B-cell lymphoma refractory
  3. POLATUZUMAB VEDOTIN [Suspect]
     Active Substance: POLATUZUMAB VEDOTIN
     Indication: B-cell lymphoma refractory
     Dosage: POLA-R-GEMOX REGIMEN 05 CYCLES
     Route: 065
  4. CYCLOPHOSPHAMIDE [Suspect]
     Active Substance: CYCLOPHOSPHAMIDE
     Indication: B-cell lymphoma stage IV
     Dosage: CHEMOTHERAPY (R-CHOP) REGIMEN 4 NOS. CYCLES
     Route: 065
  5. PREDNISONE [Suspect]
     Active Substance: PREDNISONE
     Indication: B-cell lymphoma stage IV
     Dosage: CHEMOTHERAPY (R-CHOP) REGIMEN 4 NOS. CYCLES
     Route: 065
  6. GEMCITABINE [Suspect]
     Active Substance: GEMCITABINE
     Indication: B-cell lymphoma refractory
     Dosage: POLA-R-GEMOX REGIMEN 05 CYCLES
     Route: 065
  7. EPIRUBICIN [Suspect]
     Active Substance: EPIRUBICIN
     Indication: B-cell lymphoma stage IV
     Dosage: CHEMOTHERAPY (R-CHOP) REGIMEN 4 NOS. CYCLES
     Route: 065
  8. ONCOVIN [Suspect]
     Active Substance: VINCRISTINE SULFATE
     Indication: B-cell lymphoma stage IV
     Dosage: CHEMOTHERAPY (R-CHOP) REGIMEN 4 NOS. CYCLES
     Route: 065
  9. OXALIPLATIN [Suspect]
     Active Substance: OXALIPLATIN
     Indication: B-cell lymphoma refractory
     Dosage: POLA-R-GEMOX REGIMEN 05 CYCLES
     Route: 065

REACTIONS (2)
  - Disease progression [Unknown]
  - Treatment failure [Unknown]
